FAERS Safety Report 5797200-5 (Version None)
Quarter: 2008Q3

REPORT INFORMATION
  Report Type: 
  Country: None (occurrence: None)
  Receive Date: 20080701
  Receipt Date: 20080624
  Transmission Date: 20090109
  Serious: Yes (Hospitalization)
  Sender: FDA-Public Use
  Company Number: IT-PFIZER INC-2008043146

PATIENT
  Sex: Male

DRUGS (5)
  1. TORVAST [Suspect]
     Indication: BLOOD CHOLESTEROL INCREASED
     Route: 048
     Dates: start: 20060101, end: 20080328
  2. MERREM [Suspect]
     Indication: KLEBSIELLA SEPSIS
     Dosage: TEXT:4.5 GRAM TOTAL
     Route: 042
     Dates: start: 20080327, end: 20080328
  3. GARDENALE [Concomitant]
     Indication: EPILEPSY
  4. VASERETIC [Concomitant]
     Indication: ESSENTIAL HYPERTENSION
  5. AVODART [Concomitant]

REACTIONS (2)
  - HEPATOTOXICITY [None]
  - RHABDOMYOLYSIS [None]
